FAERS Safety Report 24944863 (Version 1)
Quarter: 2025Q1

REPORT INFORMATION
  Report Type: Spontaneous
  Country: US (occurrence: US)
  Receive Date: 20250208
  Receipt Date: 20250208
  Transmission Date: 20250409
  Serious: No
  Sender: SANOFI AVENTIS
  Company Number: US-SA-2025SA038521

PATIENT
  Sex: Male
  Weight: 29.55 kg

DRUGS (2)
  1. DUPIXENT [Suspect]
     Active Substance: DUPILUMAB
     Indication: Neurodermatitis
     Dosage: 300 MG, Q4W
     Route: 058
  2. LEVETIRACETAM [Concomitant]
     Active Substance: LEVETIRACETAM

REACTIONS (2)
  - Skin disorder [Recovering/Resolving]
  - Neurodermatitis [Recovering/Resolving]
